FAERS Safety Report 15459106 (Version 1)
Quarter: 2018Q4

REPORT INFORMATION
  Report Type: Spontaneous
  Country: US (occurrence: US)
  Receive Date: 20181001
  Receipt Date: 20181001
  Transmission Date: 20190204
  Serious: No
  Sender: FDA-Public Use
  Company Number: None

PATIENT
  Age: 50 Year
  Sex: Female
  Weight: 76.5 kg

DRUGS (6)
  1. CIPRO [Suspect]
     Active Substance: CIPROFLOXACIN HYDROCHLORIDE
     Indication: URINARY TRACT INFECTION
     Route: 048
  2. VITAMIN D3 [Concomitant]
     Active Substance: CHOLECALCIFEROL
  3. QUERCETIN [Concomitant]
     Active Substance: QUERCETIN
  4. VIT B1 [Concomitant]
     Active Substance: THIAMINE HYDROCHLORIDE
  5. B6 [Concomitant]
     Active Substance: PYRIDOXINE HYDROCHLORIDE
  6. VITAMIN B12 [Concomitant]
     Active Substance: CYANOCOBALAMIN

REACTIONS (7)
  - Muscular weakness [None]
  - Neck pain [None]
  - Musculoskeletal pain [None]
  - Pain in extremity [None]
  - Hypoaesthesia [None]
  - Back pain [None]
  - Paraesthesia [None]

NARRATIVE: CASE EVENT DATE: 20180408
